FAERS Safety Report 5268915-2 (Version None)
Quarter: 2007Q1

REPORT INFORMATION
  Report Type: 
  Country: None (occurrence: None)
  Receive Date: 20070313
  Receipt Date: 20070301
  Transmission Date: 20070707
  Serious: Yes (Other)
  Sender: FDA-Public Use
  Company Number: GXKR2007GB02214

PATIENT
  Age: 31 Year
  Sex: Female

DRUGS (2)
  1. OMEPRAZOLE [Suspect]
     Indication: GASTROOESOPHAGEAL REFLUX DISEASE
     Dosage: 10 MG, QD
     Dates: start: 20050725
  2. SPASMONAL(ALVERINE CITRATE) [Suspect]
     Indication: IRRITABLE BOWEL SYNDROME
     Dosage: 60 MG, TID
     Dates: start: 20050725

REACTIONS (5)
  - ABORTION [None]
  - CONGENITAL ANOMALY [None]
  - DRUG EXPOSURE DURING PREGNANCY [None]
  - LIMB MALFORMATION [None]
  - NEURAL TUBE DEFECT [None]
